FAERS Safety Report 25651346 (Version 1)
Quarter: 2025Q3

REPORT INFORMATION
  Report Type: Spontaneous
  Country: US (occurrence: US)
  Receive Date: 20250806
  Receipt Date: 20250806
  Transmission Date: 20251021
  Serious: No
  Sender: AMGEN
  Company Number: US-AMGEN-USASP2025153876

PATIENT

DRUGS (20)
  1. PROLIA [Suspect]
     Active Substance: DENOSUMAB
     Indication: Osteoporosis
     Route: 058
     Dates: start: 201807
  2. CETIRIZINE [Concomitant]
     Active Substance: CETIRIZINE HYDROCHLORIDE
  3. CYMBALTA [Concomitant]
     Active Substance: DULOXETINE HYDROCHLORIDE
  4. FERROUS SULFATE [Concomitant]
     Active Substance: FERROUS SULFATE
  5. FLOMAX [Concomitant]
     Active Substance: TAMSULOSIN HYDROCHLORIDE
  6. LISINOPRIL [Concomitant]
     Active Substance: LISINOPRIL
  7. MOMETASONE [Concomitant]
     Active Substance: MOMETASONE
  8. MONTELUKAST [Concomitant]
     Active Substance: MONTELUKAST
  9. VITAMINS [Concomitant]
     Active Substance: VITAMINS
  10. OLMESARTAN [Concomitant]
     Active Substance: OLMESARTAN
  11. ROSUVASTATIN [Concomitant]
     Active Substance: ROSUVASTATIN
  12. TEZSPIRE [Concomitant]
     Active Substance: TEZEPELUMAB-EKKO
  13. TYLENOL [Concomitant]
     Active Substance: ACETAMINOPHEN
  14. BENZONATATE [Concomitant]
     Active Substance: BENZONATATE
  15. DOXEPIN [Concomitant]
     Active Substance: DOXEPIN
  16. EZETIMIBE [Concomitant]
     Active Substance: EZETIMIBE
     Indication: Product used for unknown indication
  17. FLUTICASONE PROPIONATE [Concomitant]
     Active Substance: FLUTICASONE PROPIONATE
  18. HYDROCODONE [Concomitant]
     Active Substance: HYDROCODONE
  19. UNSPECIFIED INGREDIENT [Concomitant]
     Active Substance: UNSPECIFIED INGREDIENT
  20. ALBUTEROL [Concomitant]
     Active Substance: ALBUTEROL

REACTIONS (7)
  - Sleep disorder [Unknown]
  - Nasal inflammation [Unknown]
  - Osteoporosis [Unknown]
  - Asthma [Unknown]
  - Cough [Unknown]
  - Osteoarthritis [Unknown]
  - Constipation [Unknown]
